FAERS Safety Report 4685221-5 (Version None)
Quarter: 2005Q2

REPORT INFORMATION
  Report Type: 
  Country: None (occurrence: None)
  Receive Date: 20050608
  Receipt Date: 20050516
  Transmission Date: 20051028
  Serious: Yes (Hospitalization)
  Sender: FDA-Public Use
  Company Number: US-BOEHRINGER INGELHEIM PHARMACEUTICALS, INC.-2005-BP-08169BP

PATIENT
  Weight: 181.6 kg

DRUGS (1)
  1. MIRAPEX [Suspect]

REACTIONS (6)
  - BLOOD CREATININE INCREASED [None]
  - HYPOTENSION [None]
  - PSEUDOMONAS INFECTION [None]
  - RENAL FAILURE ACUTE [None]
  - SEPSIS [None]
  - SKIN ULCER [None]
